FAERS Safety Report 23339260 (Version 2)
Quarter: 2023Q4

REPORT INFORMATION
  Report Type: Report from Study
  Country: RU (occurrence: RU)
  Receive Date: 20231226
  Receipt Date: 20231229
  Transmission Date: 20240110
  Serious: Yes (Other)
  Sender: FDA-Public Use
  Company Number: RU-002147023-NVSC2023RU272616

PATIENT
  Age: 1 Year
  Sex: Male
  Weight: 9.2 kg

DRUGS (3)
  1. ZOLGENSMA [Suspect]
     Active Substance: ONASEMNOGENE ABEPARVOVEC-XIOI
     Indication: Spinal muscular atrophy
     Dosage: 49.5 ML, ONE TIME
     Route: 042
     Dates: start: 20231208, end: 20231208
  2. CHOLECALCIFEROL [Concomitant]
     Active Substance: CHOLECALCIFEROL
     Indication: Product used for unknown indication
     Dosage: 1500 IU
     Route: 065
     Dates: start: 20221005
  3. PREDNISOLONE [Concomitant]
     Active Substance: PREDNISOLONE
     Indication: Product used for unknown indication
     Dosage: 9 MG
     Route: 065
     Dates: start: 20231207

REACTIONS (5)
  - Nausea [Recovered/Resolved]
  - Food intolerance [Recovered/Resolved]
  - Body temperature increased [Recovered/Resolved]
  - Nasal congestion [Recovered/Resolved]
  - Cough [Recovered/Resolved]

NARRATIVE: CASE EVENT DATE: 20231208
